FAERS Safety Report 5880257-0 (Version None)
Quarter: 2008Q3

REPORT INFORMATION
  Report Type: 
  Country: None (occurrence: None)
  Receive Date: 20080912
  Receipt Date: 20080902
  Transmission Date: 20090109
  Serious: Yes (Other)
  Sender: FDA-Public Use
  Company Number: PHHY2008JP20576

PATIENT
  Age: 6 Year

DRUGS (1)
  1. GLEEVEC [Suspect]

REACTIONS (1)
  - HEPAPLASTIN INCREASED [None]
